FAERS Safety Report 17024389 (Version 1)
Quarter: 2019Q4

REPORT INFORMATION
  Report Type: Spontaneous
  Country: MX (occurrence: MX)
  Receive Date: 20191113
  Receipt Date: 20191113
  Transmission Date: 20200122
  Serious: Yes (Other)
  Sender: FDA-Public Use
  Company Number: MX-ASTRAZENECA-2019SF60661

PATIENT
  Age: 2700 Week
  Sex: Female

DRUGS (1)
  1. FORXIGA [Suspect]
     Active Substance: DAPAGLIFLOZIN
     Indication: TYPE 2 DIABETES MELLITUS
     Dosage: 10 MG- EVERY THIRD DAY
     Route: 048

REACTIONS (2)
  - Rectal haemorrhage [Unknown]
  - Renal injury [Unknown]

NARRATIVE: CASE EVENT DATE: 20190801
